FAERS Safety Report 4467000-7 (Version None)
Quarter: 2004Q4

REPORT INFORMATION
  Report Type: 
  Country: None (occurrence: None)
  Receive Date: 20041004
  Receipt Date: 20040920
  Transmission Date: 20050328
  Serious: Yes (Other)
  Sender: FDA-Public Use
  Company Number: 2004068261

PATIENT
  Age: 77 Year
  Sex: Female
  Weight: 74.8435 kg

DRUGS (3)
  1. LIPITOR [Suspect]
     Indication: BLOOD CHOLESTEROL INCREASED
     Dosage: ORAL
     Route: 048
  2. NEURONTIN [Suspect]
     Indication: TRIGEMINAL NEURALGIA
     Dosage: 900 MG (300 MG, 3 IN 1 D), ORAL
     Route: 048
     Dates: start: 20040101
  3. EZETIMIBE (EZETIMIBE) [Concomitant]

REACTIONS (7)
  - ARTHRALGIA [None]
  - LETHARGY [None]
  - MYALGIA [None]
  - PALPITATIONS [None]
  - SOMNOLENCE [None]
  - TRANSIENT ISCHAEMIC ATTACK [None]
  - TRIGEMINAL NEURALGIA [None]
